FAERS Safety Report 18415115 (Version 2)
Quarter: 2020Q4

REPORT INFORMATION
  Report Type: Spontaneous
  Country: MA (occurrence: MA)
  Receive Date: 20201022
  Receipt Date: 20201120
  Transmission Date: 20210114
  Serious: Yes (Life-Threatening, Hospitalization, Other)
  Sender: FDA-Public Use
  Company Number: MA-PFIZER INC-2020405781

PATIENT
  Age: 53 Year
  Sex: Female

DRUGS (4)
  1. AZITHROMYCIN ANHYDROUS. [Suspect]
     Active Substance: AZITHROMYCIN ANHYDROUS
     Indication: ACUTE RESPIRATORY DISTRESS SYNDROME
  2. HYDROXYCHLOROQUINE [Suspect]
     Active Substance: HYDROXYCHLOROQUINE
     Indication: COVID-19
     Dosage: 600 MG, 3X/DAY
  3. HYDROXYCHLOROQUINE [Suspect]
     Active Substance: HYDROXYCHLOROQUINE
     Indication: ACUTE RESPIRATORY DISTRESS SYNDROME
  4. AZITHROMYCIN ANHYDROUS. [Suspect]
     Active Substance: AZITHROMYCIN ANHYDROUS
     Indication: COVID-19
     Dosage: 250 MG, 1X/DAY

REACTIONS (5)
  - Off label use [Unknown]
  - Ventricular extrasystoles [Recovered/Resolved]
  - Cardiotoxicity [Recovered/Resolved]
  - Torsade de pointes [Recovered/Resolved]
  - Product use in unapproved indication [Unknown]
